FAERS Safety Report 11719676 (Version 1)
Quarter: 2015Q4

REPORT INFORMATION
  Report Type: Spontaneous
  Country: US (occurrence: US)
  Receive Date: 20151110
  Receipt Date: 20151110
  Transmission Date: 20160304
  Serious: No
  Sender: FDA-Public Use
  Company Number: US-CTI_01764_2015

PATIENT
  Age: 2 Year

DRUGS (5)
  1. NEXIUM [Concomitant]
     Active Substance: ESOMEPRAZOLE MAGNESIUM
     Indication: CYSTIC FIBROSIS
  2. AMOXICILLIN. [Concomitant]
     Active Substance: AMOXICILLIN
     Indication: CYSTIC FIBROSIS
     Dates: start: 20150712
  3. BETHKIS [Suspect]
     Active Substance: TOBRAMYCIN
     Indication: PRODUCT USED FOR UNKNOWN INDICATION
     Route: 055
     Dates: start: 20150813
  4. PULMOZYME [Concomitant]
     Active Substance: DORNASE ALFA
     Indication: CYSTIC FIBROSIS
     Dosage: QD
     Route: 055
     Dates: start: 20150807
  5. RANITIDINE [Concomitant]
     Active Substance: RANITIDINE\RANITIDINE HYDROCHLORIDE
     Indication: CYSTIC FIBROSIS
     Dosage: 150/5ML; UNKNOWN
     Route: 048
     Dates: start: 20150708

REACTIONS (1)
  - Product use issue [Not Recovered/Not Resolved]

NARRATIVE: CASE EVENT DATE: 20150813
